FAERS Safety Report 20419597 (Version 1)
Quarter: 2022Q1

REPORT INFORMATION
  Report Type: Spontaneous
  Country: CA (occurrence: CA)
  Receive Date: 20220203
  Receipt Date: 20220203
  Transmission Date: 20220423
  Serious: Yes (Disabling, Other)
  Sender: FDA-Public Use
  Company Number: CA-AUROBINDO-AUR-APL-2022-002834

PATIENT
  Age: 1 Hour

DRUGS (1)
  1. TRANEXAMIC ACID [Suspect]
     Active Substance: TRANEXAMIC ACID
     Indication: Product used for unknown indication
     Dosage: UNK
     Route: 037

REACTIONS (8)
  - Disability [Recovered/Resolved with Sequelae]
  - Seizure [Recovered/Resolved with Sequelae]
  - Dyskinesia [Recovered/Resolved with Sequelae]
  - Pain [Recovered/Resolved with Sequelae]
  - Product design confusion [Recovered/Resolved with Sequelae]
  - Product selection error [Recovered/Resolved with Sequelae]
  - Bedridden [Recovered/Resolved with Sequelae]
  - Impaired quality of life [Recovered/Resolved with Sequelae]
